FAERS Safety Report 15800137 (Version 7)
Quarter: 2019Q1

REPORT INFORMATION
  Report Type: Spontaneous
  Country: DE (occurrence: DE)
  Receive Date: 20190108
  Receipt Date: 20190120
  Transmission Date: 20190417
  Serious: Yes (Life-Threatening, Other)
  Sender: FDA-Public Use
  Company Number: PHHY2019DE000857

PATIENT
  Age: 60 Year
  Sex: Male
  Weight: 86 kg

DRUGS (6)
  1. METHOTREXATE. [Interacting]
     Active Substance: METHOTREXATE
     Indication: PSORIASIS
  2. METHOTREXATE. [Interacting]
     Active Substance: METHOTREXATE
     Indication: PSORIASIS
     Dosage: 15 MG (LOW DOSE), QW
     Route: 065
  3. DICLOFENAC [Interacting]
     Active Substance: DICLOFENAC
     Indication: ARTHRALGIA
     Dosage: 150 MG, QD
     Route: 065
  4. METHOTREXATE. [Interacting]
     Active Substance: METHOTREXATE
     Indication: PSORIATIC ARTHROPATHY
  5. HYDROCHLOROTHIAZIDE. [Suspect]
     Active Substance: HYDROCHLOROTHIAZIDE
     Indication: PRODUCT USED FOR UNKNOWN INDICATION
     Dosage: UNK
     Route: 065
  6. PANTOPRAZOLE [Interacting]
     Active Substance: PANTOPRAZOLE
     Indication: PRODUCT USED FOR UNKNOWN INDICATION
     Dosage: UNK
     Route: 065

REACTIONS (16)
  - Leukopenia [Unknown]
  - Procalcitonin increased [Unknown]
  - Thrombocytopenia [Unknown]
  - Granulocytopenia [Unknown]
  - Mucosal erosion [Unknown]
  - C-reactive protein increased [Unknown]
  - Nephropathy toxic [Unknown]
  - Skin erosion [Unknown]
  - Purpura [Unknown]
  - Bone marrow failure [Unknown]
  - Sepsis [Unknown]
  - Drug interaction [Unknown]
  - Mucocutaneous rash [Unknown]
  - Agranulocytosis [Unknown]
  - Gingivitis ulcerative [Unknown]
  - Toxicity to various agents [Unknown]
